FAERS Safety Report 23323914 (Version 2)
Quarter: 2024Q1

REPORT INFORMATION
  Report Type: Spontaneous
  Country: IT (occurrence: IT)
  Receive Date: 20231221
  Receipt Date: 20240104
  Transmission Date: 20240410
  Serious: Yes (Death)
  Sender: FDA-Public Use
  Company Number: IT-STRIDES ARCOLAB LIMITED-2023SP018848

PATIENT
  Age: 30 Year
  Sex: Female

DRUGS (2)
  1. ZOLPIDEM [Suspect]
     Active Substance: ZOLPIDEM TARTRATE
     Indication: Product used for unknown indication
     Dosage: UNK
     Route: 048
  2. CHLOROFORM [Suspect]
     Active Substance: CHLOROFORM
     Indication: Product used for unknown indication
     Dosage: UNK (THE MAN PRACTICED FORCED EXTERNAL SUFFOCATION BY OCCLUSION OF HER NOSE AND MOUTH USING A SOFT B
     Route: 048

REACTIONS (3)
  - Altered state of consciousness [Fatal]
  - Drug diversion [Unknown]
  - Maternal exposure during pregnancy [Unknown]
